FAERS Safety Report 22084139 (Version 1)
Quarter: 2023Q1

REPORT INFORMATION
  Report Type: Spontaneous
  Country: BR (occurrence: BR)
  Receive Date: 20230310
  Receipt Date: 20230310
  Transmission Date: 20230417
  Serious: Yes (Other)
  Sender: FDA-Public Use
  Company Number: BR-TAKEDA-2023TUS025052

PATIENT
  Sex: Female
  Weight: 53 kg

DRUGS (1)
  1. DEXILANT [Suspect]
     Active Substance: DEXLANSOPRAZOLE
     Indication: Gastritis
     Dosage: 60 MILLIGRAM, QD
     Route: 048
     Dates: start: 20230303, end: 20230305

REACTIONS (9)
  - Near death experience [Unknown]
  - Malaise [Unknown]
  - Off label use [Unknown]
  - Asthenia [Unknown]
  - Dizziness [Unknown]
  - Somnolence [Unknown]
  - Chest pain [Unknown]
  - Tachycardia [Unknown]
  - Feeling abnormal [Unknown]
